FAERS Safety Report 26190670 (Version 1)
Quarter: 2025Q4

REPORT INFORMATION
  Report Type: Spontaneous
  Country: US (occurrence: US)
  Receive Date: 20251223
  Receipt Date: 20251223
  Transmission Date: 20260118
  Serious: Yes (Other)
  Sender: RANBAXY
  Company Number: US-SUN PHARMACEUTICAL INDUSTRIES LTD-2025R1-542961

PATIENT
  Age: 26 Year

DRUGS (1)
  1. TESTOSTERONE [Suspect]
     Active Substance: TESTOSTERONE
     Indication: Hormone replacement therapy
     Dosage: UNK UNK, WEEKLY
     Route: 065

REACTIONS (1)
  - Vaginal haemorrhage [Unknown]
